FAERS Safety Report 5150709-X (Version None)
Quarter: 2006Q4

REPORT INFORMATION
  Report Type: 
  Country: None (occurrence: None)
  Receive Date: 20061114
  Receipt Date: 20061113
  Transmission Date: 20070319
  Serious: Yes (Life-Threatening, Other)
  Sender: FDA-Public Use
  Company Number: GB-BRISTOL-MYERS SQUIBB COMPANY-13576350

PATIENT
  Age: 55 Year
  Sex: Female
  Weight: 84 kg

DRUGS (5)
  1. CARBOPLATIN [Suspect]
     Indication: OVARIAN CANCER
     Route: 042
     Dates: start: 20061010, end: 20061010
  2. DEXAMETHASONE TAB [Concomitant]
     Indication: PREMEDICATION
     Route: 042
     Dates: start: 20061010, end: 20061010
  3. METOCLOPRAMIDE [Concomitant]
     Indication: PREMEDICATION
     Route: 042
     Dates: start: 20061010, end: 20061010
  4. PIRITON [Concomitant]
     Indication: PREMEDICATION
     Route: 042
     Dates: start: 20061010, end: 20061010
  5. RANITIDINE [Concomitant]
     Indication: PREMEDICATION
     Route: 042
     Dates: start: 20061010, end: 20061010

REACTIONS (2)
  - CHEST DISCOMFORT [None]
  - VOMITING [None]
